FAERS Safety Report 17016655 (Version 2)
Quarter: 2020Q4

REPORT INFORMATION
  Report Type: Report from Study
  Country: DE (occurrence: DE)
  Receive Date: 20191111
  Receipt Date: 20201202
  Transmission Date: 20210113
  Serious: Yes (Hospitalization)
  Sender: FDA-Public Use
  Company Number: DE-PFIZER INC-2019479489

PATIENT
  Age: 60 Year
  Sex: Female
  Weight: 73 kg

DRUGS (11)
  1. LEUCOVORIN. [Suspect]
     Active Substance: LEUCOVORIN
     Indication: COLORECTAL CANCER METASTATIC
     Dosage: 647 MG, CYCLIC
     Route: 042
     Dates: start: 20190814, end: 20190814
  2. 5-FU [FLUOROURACIL] [Suspect]
     Active Substance: FLUOROURACIL
     Indication: COLORECTAL CANCER METASTATIC
     Dosage: 5180 MG, CYCLIC
     Route: 042
     Dates: start: 20190814, end: 20190814
  3. LEUCOVORIN. [Suspect]
     Active Substance: LEUCOVORIN
     Dosage: 647 MG, CYCLIC
     Route: 042
     Dates: start: 20191009, end: 20191009
  4. HCT [Concomitant]
     Active Substance: HYDROCHLOROTHIAZIDE
     Dosage: 25 MG, QD
     Dates: start: 20190827
  5. AFLIBERCEPT [Suspect]
     Active Substance: AFLIBERCEPT
     Dosage: 300 MG, CYCLIC
     Route: 042
     Dates: start: 20191009, end: 20191009
  6. CANDESARTAN. [Concomitant]
     Active Substance: CANDESARTAN
     Dosage: 16 MG, QD
     Dates: start: 2015
  7. AFLIBERCEPT [Suspect]
     Active Substance: AFLIBERCEPT
     Indication: COLORECTAL CANCER METASTATIC
     Dosage: 300 MG, CYCLIC
     Route: 042
     Dates: start: 20190814, end: 20190814
  8. 5-FU [FLUOROURACIL] [Suspect]
     Active Substance: FLUOROURACIL
     Dosage: 5180 MG, CYCLIC
     Route: 042
     Dates: start: 20191009, end: 20191009
  9. OXALIPLATIN. [Suspect]
     Active Substance: OXALIPLATIN
     Indication: COLORECTAL CANCER METASTATIC
     Dosage: 1572 MG, CYCLIC
     Route: 042
     Dates: start: 20190814, end: 20190814
  10. AMLODIPINE [Concomitant]
     Active Substance: AMLODIPINE BESYLATE
     Dosage: 5 MG, QD
     Dates: start: 20190821
  11. OXALIPLATIN. [Suspect]
     Active Substance: OXALIPLATIN
     Dosage: 1572 MG, CYCLIC
     Route: 042
     Dates: start: 20191009, end: 20191009

REACTIONS (2)
  - Hypertension [Recovered/Resolved]
  - Embolism [Recovered/Resolved]

NARRATIVE: CASE EVENT DATE: 20191009
